FAERS Safety Report 15480495 (Version 1)
Quarter: 2018Q4

REPORT INFORMATION
  Report Type: Spontaneous
  Country: CN (occurrence: CN)
  Receive Date: 20181010
  Receipt Date: 20181010
  Transmission Date: 20190205
  Serious: Yes (Hospitalization, Other)
  Sender: FDA-Public Use
  Company Number: CN-BAXTER-2018BAX024917

PATIENT
  Age: 75 Year
  Sex: Female

DRUGS (3)
  1. 20% MANNITOL INJECTION [Suspect]
     Active Substance: MANNITOL
     Dosage: TWO TIMES A DAY
     Route: 041
     Dates: start: 20180808, end: 20180808
  2. 20% MANNITOL INJECTION [Suspect]
     Active Substance: MANNITOL
     Indication: INTRACRANIAL PRESSURE INCREASED
     Dosage: Q12H
     Route: 041
     Dates: start: 20180805, end: 20180806
  3. 20% MANNITOL INJECTION [Suspect]
     Active Substance: MANNITOL
     Dosage: THREE TIMES A DAY
     Route: 041
     Dates: start: 20180807, end: 20180807

REACTIONS (8)
  - Lung infection [Unknown]
  - Diabetes mellitus [Unknown]
  - Infection [Unknown]
  - Renal impairment [Unknown]
  - Hypertension [Unknown]
  - Epilepsy [Unknown]
  - Condition aggravated [Unknown]
  - Cerebral infarction [Unknown]

NARRATIVE: CASE EVENT DATE: 20180809
